FAERS Safety Report 7133123-7 (Version None)
Quarter: 2010Q4

REPORT INFORMATION
  Report Type: 
  Country: None (occurrence: None)
  Receive Date: 20101202
  Receipt Date: 20101129
  Transmission Date: 20110411
  Serious: Yes (Other)
  Sender: FDA-Public Use
  Company Number: DE-ROXANE LABORATORIES, INC.-2010-RO-01555RO

PATIENT
  Age: 37 Year
  Sex: Male
  Weight: 109 kg

DRUGS (1)
  1. MORPHINE [Suspect]
     Indication: PAIN
     Route: 037

REACTIONS (2)
  - BREATHING-RELATED SLEEP DISORDER [None]
  - SOMNOLENCE [None]
